FAERS Safety Report 16650037 (Version 3)
Quarter: 2019Q3

REPORT INFORMATION
  Report Type: Report from Study
  Country: US (occurrence: US)
  Receive Date: 20190731
  Receipt Date: 20190925
  Transmission Date: 20191004
  Serious: No
  Sender: FDA-Public Use
  Company Number: PHEH2019US031199

PATIENT
  Sex: Female

DRUGS (2)
  1. ENTRESTO [Suspect]
     Active Substance: SACUBITRIL\VALSARTAN
     Dosage: 1 DF (49 MG OF SACUBITRIL AND 51 MG OF VALSARTAN), UNK
     Route: 048
  2. ENTRESTO [Suspect]
     Active Substance: SACUBITRIL\VALSARTAN
     Indication: PRODUCT USED FOR UNKNOWN INDICATION
     Dosage: 1 DF (24 MG OF SACUBITRIL AND 26 MG OF VALSARTAN), UNK
     Route: 048

REACTIONS (4)
  - Glycosylated haemoglobin increased [Unknown]
  - Blood potassium decreased [Unknown]
  - Glucose tolerance impaired [Unknown]
  - Blood glucose increased [Unknown]
